FAERS Safety Report 4538764-9 (Version None)
Quarter: 2004Q4

REPORT INFORMATION
  Report Type: 
  Country: None (occurrence: None)
  Receive Date: 20041222
  Receipt Date: 20041209
  Transmission Date: 20050328
  Serious: Yes (Death)
  Sender: FDA-Public Use
  Company Number: 210994

PATIENT
  Age: 58 Year
  Sex: Male
  Weight: 139.7 kg

DRUGS (16)
  1. AVASTIN [Suspect]
     Indication: COLON CANCER METASTATIC
     Dosage: 695 MG, INTRAVENOUS
     Route: 042
     Dates: start: 20040901, end: 20041201
  2. ENRLOTINIB (ERLOTINIB) TABLET, 100MG [Suspect]
     Indication: COLON CANCER METASTATIC
     Dosage: 100 MG, ORAL
     Route: 048
     Dates: start: 20040901, end: 20041201
  3. FLUOROURACIL [Suspect]
     Indication: COLON CANCER METASTATIC
     Dosage: SEE IMAGE
     Route: 042
     Dates: start: 20040901, end: 20041201
  4. FLUOROURACIL [Suspect]
     Indication: COLON CANCER METASTATIC
     Dosage: SEE IMAGE
     Route: 042
     Dates: start: 20040901, end: 20041201
  5. LEUCOVORIN (LECOVORIN CALCIM) [Suspect]
     Indication: COLON CANCER METASTATIC
     Dosage: 520 MG, INTRAVENOUS
     Route: 042
     Dates: start: 20040901, end: 20040901
  6. OXALIPLATIN (OXALIPLATIN) [Suspect]
     Indication: COLON CANCER METASTATIC
     Dosage: 169 MGINTRAVENOUS
     Route: 042
     Dates: start: 20040901, end: 20041201
  7. KYTRIL [Concomitant]
  8. HYDROCODONE/APAP (HYDROCODONE BITARTRATE, ACETAMINOPHEN) [Concomitant]
  9. FUROSEMIDE 9FUROSEMIDE) [Concomitant]
  10. LOMOTIL (DIPHENOXYLATE HYDROCHLORIDE, ATROPINE SULFATE0 [Concomitant]
  11. COMPAZINE [Concomitant]
  12. MIRACLE MOUTHWASH (NYSTATIN, LIDOCAINE, BENAD (DYSTANTIN, MAGNESIUM HY [Concomitant]
  13. ZOFRAN OONDANSETRON HYDROCHLORIDE) [Concomitant]
  14. K-DUR 10 [Concomitant]
  15. GLYBURIDE [Concomitant]
  16. BENAZEPRIL (BENAZEPRIL HYDROCHLORIDE) [Concomitant]

REACTIONS (6)
  - CARDIAC ARREST [None]
  - COMA [None]
  - FAECAL INCONTINENCE [None]
  - GRIP STRENGTH DECREASED [None]
  - PUPILLARY LIGHT REFLEX TESTS ABNORMAL [None]
  - URINARY INCONTINENCE [None]
